FAERS Safety Report 6153091-4 (Version None)
Quarter: 2009Q2

REPORT INFORMATION
  Report Type: 
  Country: None (occurrence: None)
  Receive Date: 20090409
  Receipt Date: 20090325
  Transmission Date: 20091009
  Serious: No
  Sender: FDA-Public Use
  Company Number: 2009-193935-NL

PATIENT
  Age: 38 Year
  Sex: Female

DRUGS (14)
  1. FOLLITROPIN BETA [Suspect]
     Indication: OVULATION INDUCTION
     Dosage: 225 IU; INTRAMUSCULAR
     Route: 030
     Dates: start: 20060828, end: 20060831
  2. MENOTROPINS [Suspect]
     Indication: OVULATION INDUCTION
     Dosage: 225 IU;
     Dates: start: 20060901, end: 20060903
  3. CHORIONIC GONADOTROPIN [Concomitant]
  4. PREDNISOLONE [Concomitant]
  5. MARZULENE [Concomitant]
  6. MINOCYCLINE HYDROCHLORIDE [Concomitant]
  7. ENTERONON R [Concomitant]
  8. CHLORMADINONE ACETATE TAB [Concomitant]
  9. PIPERIDOLATE HYDROCHLORIDE [Concomitant]
  10. CHORIONIC GONADTROPIN [Concomitant]
  11. ESTROGENS CONJUGATED [Concomitant]
  12. PROGESTERONE [Concomitant]
  13. LORNOXICAM [Concomitant]
  14. CHORIONIC GONADOTROPIN [Interacting]

REACTIONS (4)
  - DISBACTERIOSIS [None]
  - DRUG EXPOSURE DURING PREGNANCY [None]
  - FORCEPS DELIVERY [None]
  - INTRAPARTUM HAEMORRHAGE [None]
